FAERS Safety Report 9664037 (Version 2)
Quarter: 2013Q4

REPORT INFORMATION
  Report Type: Spontaneous
  Country: PE (occurrence: PE)
  Receive Date: 20131101
  Receipt Date: 20131114
  Transmission Date: 20140711
  Serious: Yes (Death, Other)
  Sender: FDA-Public Use
  Company Number: PE-PFIZER INC-2013309923

PATIENT
  Age: 88 Year
  Sex: Male

DRUGS (3)
  1. XALATAN [Suspect]
     Indication: GLAUCOMA
     Dosage: UNK, 1X/DAY
     Route: 047
     Dates: start: 2005, end: 20131014
  2. METFORMIN [Concomitant]
     Indication: DIABETES MELLITUS
     Dosage: UNK
     Route: 048
     Dates: end: 20131014
  3. GLIBENCLAMIDE [Concomitant]
     Indication: DIABETES MELLITUS
     Dosage: UNK
     Route: 048
     Dates: end: 20131014

REACTIONS (1)
  - Myocardial infarction [Fatal]
